FAERS Safety Report 20627301 (Version 1)
Quarter: 2022Q1

REPORT INFORMATION
  Report Type: Spontaneous
  Country: US (occurrence: US)
  Receive Date: 20220323
  Receipt Date: 20220323
  Transmission Date: 20220423
  Serious: Yes (Other)
  Sender: FDA-Public Use
  Company Number: US-GLAXOSMITHKLINE-US2022GSK050999

PATIENT
  Sex: Female

DRUGS (4)
  1. RANITIDINE [Suspect]
     Active Substance: RANITIDINE
     Indication: Gastric ulcer
     Dosage: 300 MG, QD
     Dates: start: 200101, end: 200401
  2. RANITIDINE [Suspect]
     Active Substance: RANITIDINE
     Indication: Gastric cancer
  3. RANITIDINE [Suspect]
     Active Substance: RANITIDINE
     Indication: Gastric ulcer
     Dosage: 300 MG, QD
     Dates: start: 200101, end: 200401
  4. RANITIDINE [Suspect]
     Active Substance: RANITIDINE
     Indication: Gastric cancer

REACTIONS (1)
  - Gastric cancer [Unknown]
